FAERS Safety Report 9231668 (Version 1)
Quarter: 2013Q2

REPORT INFORMATION
  Report Type: Report from Study
  Country: ZA (occurrence: ZA)
  Receive Date: 20130415
  Receipt Date: 20130415
  Transmission Date: 20140414
  Serious: Yes (Death)
  Sender: FDA-Public Use
  Company Number: ZA-ROCHE-1214023

PATIENT
  Age: 71 Year
  Sex: Male

DRUGS (3)
  1. MIRCERA [Suspect]
     Indication: NEPHROGENIC ANAEMIA
     Route: 058
     Dates: start: 20110208
  2. MIRCERA [Suspect]
     Route: 058
     Dates: start: 20120228
  3. MIRCERA [Suspect]
     Route: 058
     Dates: start: 20120711

REACTIONS (1)
  - Death [Fatal]
